FAERS Safety Report 4525418-8 (Version None)
Quarter: 2004Q4

REPORT INFORMATION
  Report Type: 
  Country: None (occurrence: None)
  Receive Date: 20041213
  Receipt Date: 20041201
  Transmission Date: 20050328
  Serious: Yes (Other)
  Sender: FDA-Public Use
  Company Number: GB-GLAXOSMITHKLINE-B0359045A

PATIENT
  Age: 63 Year
  Sex: Male
  Weight: 70 kg

DRUGS (2)
  1. AVODART [Suspect]
     Indication: PROSTATIC DISORDER
     Dosage: 500MCG UNKNOWN
     Route: 048
     Dates: start: 20040630, end: 20040726
  2. TAMSULOSIN [Concomitant]
     Indication: PROSTATIC DISORDER
     Dosage: 400MCG PER DAY
     Route: 048
     Dates: start: 20020901

REACTIONS (4)
  - LIP ULCERATION [None]
  - MOUTH ULCERATION [None]
  - OEDEMA PERIPHERAL [None]
  - SWELLING FACE [None]
